FAERS Safety Report 19610254 (Version 1)
Quarter: 2021Q3

REPORT INFORMATION
  Report Type: Report from Study
  Country: DE (occurrence: DE)
  Receive Date: 20210726
  Receipt Date: 20210726
  Transmission Date: 20211014
  Serious: Yes (Other)
  Sender: FDA-Public Use
  Company Number: DE-BIOGEN-2021BI01033490

PATIENT
  Age: 0 Year
  Sex: Female
  Weight: 4.4 kg

DRUGS (2)
  1. VITAMIN K [Concomitant]
     Active Substance: PHYTONADIONE
     Indication: PROPHYLAXIS
     Route: 048
     Dates: start: 201809, end: 2018
  2. PLEGRIDY [Suspect]
     Active Substance: PEGINTERFERON BETA-1A
     Indication: MATERNAL EXPOSURE TIMING UNSPECIFIED
     Route: 065

REACTIONS (5)
  - Infection [Unknown]
  - Reflexes abnormal [Recovered/Resolved]
  - Foetal exposure during pregnancy [Recovered/Resolved]
  - Developmental hip dysplasia [Recovered/Resolved]
  - Shoulder dystocia [Recovered/Resolved]

NARRATIVE: CASE EVENT DATE: 20171215
